FAERS Safety Report 8892453 (Version 2)
Quarter: 2012Q4

REPORT INFORMATION
  Report Type: 
  Country: IE (occurrence: IE)
  Receive Date: 20121107
  Receipt Date: 20121129
  Transmission Date: 20130627
  Serious: Yes (Hospitalization)
  Sender: FDA-Public Use
  Company Number: IE-GLAXOSMITHKLINE-B0842742A

PATIENT
  Age: 60 Year
  Sex: Female

DRUGS (1)
  1. REVOLADE [Suspect]
     Indication: IDIOPATHIC THROMBOCYTOPENIC PURPURA
     Dosage: 50MG per day
     Route: 048
     Dates: start: 201209

REACTIONS (3)
  - Pancreatitis [Unknown]
  - Myocardial infarction [Unknown]
  - Thrombosis [Unknown]
